FAERS Safety Report 8462769-9 (Version None)
Quarter: 2012Q2

REPORT INFORMATION
  Report Type: 
  Country: None (occurrence: None)
  Receive Date: 20120619
  Receipt Date: 20120619
  Transmission Date: 20120825
  Serious: Yes (Other)
  Sender: FDA-Public Use
  Company Number: None

PATIENT
  Age: 33 Year
  Sex: Male
  Weight: 117.9352 kg

DRUGS (5)
  1. METHYLPHENIDATE [Concomitant]
  2. SAPHRIS [Suspect]
     Indication: SCHIZOPHRENIA, PARANOID TYPE
     Dosage: 10MG ONCE A DAY PO
     Route: 048
     Dates: start: 20120528, end: 20120617
  3. PAROXETINE [Concomitant]
  4. HALDOL [Concomitant]
  5. BENZTROPINE MESYLATE [Concomitant]

REACTIONS (5)
  - DEPRESSION [None]
  - SPEECH DISORDER [None]
  - GAIT DISTURBANCE [None]
  - PSYCHOTIC DISORDER [None]
  - CONDITION AGGRAVATED [None]
